FAERS Safety Report 5930485-0 (Version None)
Quarter: 2008Q4

REPORT INFORMATION
  Report Type: 
  Country: None (occurrence: None)
  Receive Date: 20081026
  Receipt Date: 20081014
  Transmission Date: 20090506
  Serious: Yes (Other)
  Sender: FDA-Public Use
  Company Number: PHHY2008JP23440

PATIENT

DRUGS (2)
  1. GLEEVEC [Suspect]
     Dosage: 400 MG DAILY
     Route: 048
     Dates: start: 20020201
  2. GLEEVEC [Suspect]
     Dosage: 200-300 MG DAILY

REACTIONS (3)
  - DIFFUSE LARGE B-CELL LYMPHOMA [None]
  - HYPOAESTHESIA [None]
  - LYMPHADENOPATHY [None]
